FAERS Safety Report 6714871-7 (Version None)
Quarter: 2010Q2

REPORT INFORMATION
  Report Type: 
  Country: None (occurrence: None)
  Receive Date: 20100506
  Receipt Date: 20100506
  Transmission Date: 20101027
  Serious: Yes (Other)
  Sender: FDA-Public Use
  Company Number: None

PATIENT
  Age: 1 Year
  Sex: Male
  Weight: 10.8863 kg

DRUGS (3)
  1. CHILDREN'S MOTRIN [Suspect]
     Indication: PYREXIA
     Dosage: 3/4 TSP EVERY 6 HOURS PO
     Route: 048
     Dates: start: 20100428, end: 20100503
  2. CHILDREN'S TYLENOL [Suspect]
     Indication: PYREXIA
     Dosage: 1 TSP EVERY 4 HOURS PO
     Route: 048
     Dates: start: 20100428, end: 20100503
  3. CHILDREN'S ZYRTEC ALLERGY [Suspect]

REACTIONS (2)
  - PRODUCT QUALITY ISSUE [None]
  - RASH GENERALISED [None]
